FAERS Safety Report 7629593-8 (Version None)
Quarter: 2011Q3

REPORT INFORMATION
  Report Type: 
  Country: None (occurrence: None)
  Receive Date: 20110722
  Receipt Date: 20110713
  Transmission Date: 20111222
  Serious: Yes (Hospitalization)
  Sender: FDA-Public Use
  Company Number: US-ASTRAZENECA-2011SE42101

PATIENT
  Age: 40 Year
  Sex: Male
  Weight: 99.8 kg

DRUGS (2)
  1. SEVERAL MEDICINES [Concomitant]
  2. SEROQUEL XR [Suspect]
     Route: 048

REACTIONS (2)
  - ACCIDENT AT WORK [None]
  - BRAIN OPERATION [None]
